FAERS Safety Report 17591903 (Version 1)
Quarter: 2020Q1

REPORT INFORMATION
  Report Type: Spontaneous
  Country: US (occurrence: US)
  Receive Date: 20200327
  Receipt Date: 20200327
  Transmission Date: 20200409
  Serious: Yes (Disabling)
  Sender: FDA-Public Use
  Company Number: None

PATIENT
  Age: 37 Year
  Sex: Female
  Weight: 84.15 kg

DRUGS (8)
  1. LEVONOR-ETH ESTRAD [Concomitant]
  2. ADVAIR HFA [Concomitant]
     Active Substance: FLUTICASONE PROPIONATE\SALMETEROL XINAFOATE
  3. ALBUTEROL SULFATE. [Concomitant]
     Active Substance: ALBUTEROL SULFATE
  4. VITAMIN D [Concomitant]
     Active Substance: VITAMIN D NOS
  5. ACETAMINOPHEN. [Concomitant]
     Active Substance: ACETAMINOPHEN
  6. WIXELA INHUB [Suspect]
     Active Substance: FLUTICASONE PROPIONATE\SALMETEROL XINAFOATE
     Indication: ASTHMA
     Dosage: ?          OTHER STRENGTH:MCG;QUANTITY:60 INHALATION(S);?
     Route: 055
     Dates: start: 20190601, end: 20200325
  7. MULTI VITAMINS [Concomitant]
     Active Substance: VITAMINS
  8. IBUPROFEN. [Concomitant]
     Active Substance: IBUPROFEN

REACTIONS (7)
  - Product complaint [None]
  - Device issue [None]
  - Nasopharyngitis [None]
  - Pregnancy [None]
  - Asthma [None]
  - Product substitution issue [None]
  - Exposure during pregnancy [None]

NARRATIVE: CASE EVENT DATE: 20200323
